FAERS Safety Report 4335419-0 (Version None)
Quarter: 2004Q2

REPORT INFORMATION
  Report Type: 
  Country: None (occurrence: None)
  Receive Date: 20040408
  Receipt Date: 20040408
  Transmission Date: 20050107
  Serious: Yes (Life-Threatening, Hospitalization)
  Sender: FDA-Public Use
  Company Number: None

PATIENT
  Age: 49 Year
  Sex: Male
  Weight: 181.4388 kg

DRUGS (1)
  1. LAMICTAL [Suspect]
     Indication: BIPOLAR DISORDER
     Dosage: ORAL
     Route: 048
     Dates: start: 20040304, end: 20040331

REACTIONS (3)
  - INCOHERENT [None]
  - MOBILITY DECREASED [None]
  - RENAL FAILURE ACUTE [None]
